FAERS Safety Report 9914719 (Version 2)
Quarter: 2014Q3

REPORT INFORMATION
  Report Type: Spontaneous
  Country: SE (occurrence: SE)
  Receive Date: 20140220
  Receipt Date: 20140926
  Transmission Date: 20150326
  Serious: Yes (Disabling, Other)
  Sender: FDA-Public Use
  Company Number: SE-BAUSCH-BL-2014-000898

PATIENT
  Age: 51 Year
  Sex: Female

DRUGS (1)
  1. TROPIKAMID CHAUVIN 0.5% (5 MG/ML) EYE DROPS, SOLUTION, SINGLE DOSE CON [Suspect]
     Active Substance: TROPICAMIDE
     Indication: PRODUCT USED FOR UNKNOWN INDICATION
     Dates: end: 20110207

REACTIONS (6)
  - Angle closure glaucoma [Unknown]
  - Nausea [Unknown]
  - Vision blurred [Unknown]
  - Headache [Unknown]
  - Blindness [Unknown]
  - Unevaluable event [Unknown]

NARRATIVE: CASE EVENT DATE: 20110207
